FAERS Safety Report 4428766-5 (Version None)
Quarter: 2004Q3

REPORT INFORMATION
  Report Type: 
  Country: None (occurrence: None)
  Receive Date: 20040818
  Receipt Date: 20040513
  Transmission Date: 20050211
  Serious: No
  Sender: FDA-Public Use
  Company Number: US-BRISTOL-MYERS SQUIBB COMPANY-12586921

PATIENT
  Age: 73 Year
  Sex: Female
  Weight: 71 kg

DRUGS (5)
  1. TEQUIN [Suspect]
     Indication: URINARY TRACT INFECTION
     Route: 048
     Dates: start: 20040430, end: 20040507
  2. SYNTHROID [Concomitant]
     Dosage: 5 DAYS PER WEEK AND 0.50 MG 2 TIMES PER WEEK.
  3. ATENOLOL [Concomitant]
  4. ZOCOR [Concomitant]
     Dosage: ^FOR YEARS^
  5. APRESOLINE [Concomitant]
     Indication: SLEEP DISORDER

REACTIONS (5)
  - ABDOMINAL PAIN LOWER [None]
  - ARTHRALGIA [None]
  - DRY MOUTH [None]
  - MUSCLE SPASMS [None]
  - PAIN IN EXTREMITY [None]
